FAERS Safety Report 14006877 (Version 1)
Quarter: 2017Q3

REPORT INFORMATION
  Report Type: Spontaneous
  Country: US (occurrence: US)
  Receive Date: 20170925
  Receipt Date: 20170925
  Transmission Date: 20171128
  Serious: No
  Sender: FDA-Public Use
  Company Number: US-PFIZER INC-2017411563

PATIENT
  Age: 47 Year
  Sex: Female

DRUGS (1)
  1. XELJANZ [Suspect]
     Active Substance: TOFACITINIB CITRATE
     Dosage: 5 MG, 2X/DAY
     Dates: start: 20170206

REACTIONS (7)
  - Ear discomfort [Unknown]
  - Rhinorrhoea [Unknown]
  - Sinus headache [Unknown]
  - Cough [Unknown]
  - Arthropathy [Unknown]
  - Nasopharyngitis [Unknown]
  - Pain [Unknown]
